FAERS Safety Report 10779816 (Version 1)
Quarter: 2015Q1

REPORT INFORMATION
  Report Type: Spontaneous
  Country: FR (occurrence: FR)
  Receive Date: 20150210
  Receipt Date: 20150210
  Transmission Date: 20150721
  Serious: Yes (Other)
  Sender: FDA-Public Use
  Company Number: FR-PFIZER INC-2015049801

PATIENT
  Age: 12 Year
  Sex: Female

DRUGS (2)
  1. LYRICA [Suspect]
     Active Substance: PREGABALIN
     Dosage: UNK
     Dates: end: 201409
  2. RIVOTRIL [Suspect]
     Active Substance: CLONAZEPAM
     Dosage: UNK

REACTIONS (2)
  - Product use issue [Unknown]
  - Impaired gastric emptying [Unknown]
